FAERS Safety Report 21917562 (Version 1)
Quarter: 2023Q1

REPORT INFORMATION
  Report Type: Spontaneous
  Country: IT (occurrence: IT)
  Receive Date: 20230126
  Receipt Date: 20230126
  Transmission Date: 20230418
  Serious: Yes (Hospitalization, Other)
  Sender: FDA-Public Use
  Company Number: None

PATIENT
  Age: 46 Year
  Sex: Female
  Weight: 65 kg

DRUGS (4)
  1. DOPTELET [Suspect]
     Active Substance: AVATROMBOPAG MALEATE
     Indication: Immune thrombocytopenia
     Dosage: 20 MG PER DAY, EVERY DAY
     Dates: start: 20221125
  2. EZETIMIBE\ROSUVASTATIN CALCIUM [Concomitant]
     Active Substance: EZETIMIBE\ROSUVASTATIN CALCIUM
     Indication: Dyslipidaemia
     Dosage: 10/10MG DAILY
  3. ARIXTRA [Concomitant]
     Active Substance: FONDAPARINUX SODIUM
     Indication: Venous thrombosis
     Dosage: 2.5 MG/DAY INCREASED TO 7.5 MG/DAY ON 12/22/22
  4. DAFLON [Concomitant]
     Dosage: 500MG X2 DAILY

REACTIONS (3)
  - Superficial vein thrombosis [Not Recovered/Not Resolved]
  - Transverse sinus thrombosis [Not Recovered/Not Resolved]
  - Sigmoid sinus thrombosis [Not Recovered/Not Resolved]

NARRATIVE: CASE EVENT DATE: 20221207
